FAERS Safety Report 23357456 (Version 3)
Quarter: 2024Q4

REPORT INFORMATION
  Report Type: Report from Study
  Country: US (occurrence: US)
  Receive Date: 20240102
  Receipt Date: 20241117
  Transmission Date: 20250114
  Serious: Yes (Other)
  Sender: ROCHE
  Company Number: US-ROCHE-3481606

PATIENT
  Age: 83 Year
  Sex: Female

DRUGS (1)
  1. ROZLYTREK [Suspect]
     Active Substance: ENTRECTINIB
     Indication: Thyroid cancer
     Dosage: TAKE 4 CAPSULE(S) BY MOUTH EVERY DAY
     Route: 048

REACTIONS (5)
  - Off label use [Unknown]
  - Fall [Unknown]
  - Hip fracture [Unknown]
  - Femur fracture [Unknown]
  - Infection [Unknown]

NARRATIVE: CASE EVENT DATE: 20231201
